FAERS Safety Report 5176343-3 (Version None)
Quarter: 2006Q4

REPORT INFORMATION
  Report Type: 
  Country: None (occurrence: None)
  Receive Date: 20061128
  Receipt Date: 20061113
  Transmission Date: 20070319
  Serious: Yes (Death)
  Sender: FDA-Public Use
  Company Number: 2006BH014610

PATIENT
  Age: 58 Year
  Sex: Male

DRUGS (1)
  1. GAMMAGARD S/D [Suspect]
     Indication: DRUG USE FOR UNKNOWN INDICATION
     Dosage: 18 GM; EVERY DAY; IV
     Route: 042
     Dates: start: 20030303, end: 20030305

REACTIONS (4)
  - BLOOD CREATININE INCREASED [None]
  - CARDIAC ARREST [None]
  - CARDIOMYOPATHY [None]
  - PYREXIA [None]
